FAERS Safety Report 25316689 (Version 8)
Quarter: 2025Q3

REPORT INFORMATION
  Report Type: Spontaneous
  Country: US (occurrence: US)
  Receive Date: 20250515
  Receipt Date: 20250827
  Transmission Date: 20251020
  Serious: Yes (Hospitalization, Other)
  Sender: UNITED THERAPEUTICS
  Company Number: US-UNITED THERAPEUTICS-UNT-2025-016412

PATIENT
  Sex: Male

DRUGS (4)
  1. TYVASO [Suspect]
     Active Substance: TREPROSTINIL
     Indication: Pulmonary hypertension
     Dosage: 60 ?G, QID
     Dates: start: 2025, end: 2025
  2. TYVASO [Suspect]
     Active Substance: TREPROSTINIL
     Indication: Pulmonary fibrosis
  3. TYVASO [Suspect]
     Active Substance: TREPROSTINIL
     Dosage: 42 ?G, QID [REDUCED DOSE]
     Dates: start: 2025
  4. TYVASO [Suspect]
     Active Substance: TREPROSTINIL

REACTIONS (4)
  - Pneumonia bacterial [Recovering/Resolving]
  - Blood test abnormal [Not Recovered/Not Resolved]
  - Cough [Recovered/Resolved]
  - Drug tolerance decreased [Recovered/Resolved]

NARRATIVE: CASE EVENT DATE: 20250101
